FAERS Safety Report 4386712-7 (Version None)
Quarter: 2004Q2

REPORT INFORMATION
  Report Type: 
  Country: None (occurrence: None)
  Receive Date: 20040607
  Receipt Date: 20030521
  Transmission Date: 20050107
  Serious: Yes (Other)
  Sender: FDA-Public Use
  Company Number: 327785

PATIENT
  Age: 18 Year
  Sex: Male
  Weight: 51.7 kg

DRUGS (1)
  1. ACCUTANE [Suspect]
     Indication: ACNE
     Dosage: 50 MG DAILY ORAL
     Route: 048
     Dates: start: 20011210, end: 20020413

REACTIONS (3)
  - ALOPECIA [None]
  - BLOOD TRIGLYCERIDES INCREASED [None]
  - HYPOTRICHOSIS [None]
